FAERS Safety Report 5480405-0 (Version None)
Quarter: 2007Q4

REPORT INFORMATION
  Report Type: 
  Country: None (occurrence: None)
  Receive Date: 20071004
  Receipt Date: 20071004
  Transmission Date: 20080405
  Serious: Yes (Other)
  Sender: FDA-Public Use
  Company Number: None

PATIENT
  Age: 50 Year
  Sex: Female

DRUGS (1)
  1. PHOSPHOSODA FLAVOR NOT SPECIFIED [Suspect]
     Indication: SURGERY
     Dosage: X1;PO
     Route: 048
     Dates: start: 20070919, end: 20070919

REACTIONS (3)
  - DRUG TOXICITY [None]
  - RENAL DISORDER [None]
  - RENAL FAILURE [None]
